FAERS Safety Report 7754708-0 (Version None)
Quarter: 2011Q3

REPORT INFORMATION
  Report Type: 
  Country: None (occurrence: None)
  Receive Date: 20110915
  Receipt Date: 20110620
  Transmission Date: 20111222
  Serious: Yes (Other)
  Sender: FDA-Public Use
  Company Number: PHFR2011IE03756

PATIENT
  Sex: Female

DRUGS (8)
  1. ASASANTIN - SLOW RELEASE [Concomitant]
     Dosage: 1 DF, QD
  2. GALFER [Concomitant]
     Indication: ANAEMIA
     Dosage: 1 DF, UNK
  3. MIRTAZAPINE [Concomitant]
     Dosage: 45 MG/DAY
     Dates: start: 20090720, end: 20101012
  4. CLOZAPINE [Suspect]
     Indication: SCHIZOPHRENIA
     Dosage: 425 MG, UNK
     Route: 048
     Dates: start: 19931116
  5. PREGABALIN [Concomitant]
     Indication: ANXIETY
     Dosage: 75 MG/DAY
     Route: 048
  6. VENLAFAXINE HYDROCHLORIDE [Concomitant]
     Indication: DEPRESSION
     Dosage: 150 MG/DAY
     Route: 048
  7. VESITRIM [Concomitant]
     Dosage: 10 MG, UNK
     Route: 048
  8. ACETAMINOPHEN [Concomitant]
     Indication: ARTHRITIS
     Dosage: 500 MG, UNK
     Route: 048

REACTIONS (3)
  - URINARY TRACT INFECTION [None]
  - INFLUENZA LIKE ILLNESS [None]
  - LOWER RESPIRATORY TRACT INFECTION [None]
